FAERS Safety Report 8256878-7 (Version None)
Quarter: 2012Q1

REPORT INFORMATION
  Report Type: 
  Country: None (occurrence: None)
  Receive Date: 20120330
  Receipt Date: 20120330
  Transmission Date: 20120608
  Serious: Yes (Other)
  Sender: FDA-Public Use
  Company Number: None

PATIENT
  Age: 75 Year
  Sex: Male
  Weight: 86.1834 kg

DRUGS (2)
  1. METHYLPREDNISOLONE [Suspect]
     Indication: POST PROCEDURAL COMPLICATION
     Dosage: 6 TAB 1ST DAY DOSE PACK 6 DAYS
     Dates: start: 20120224
  2. METHYLPREDNISOLONE [Suspect]
     Indication: EYE INFLAMMATION
     Dosage: 6 TAB 1ST DAY DOSE PACK 6 DAYS
     Dates: start: 20120224

REACTIONS (7)
  - HEART RATE INCREASED [None]
  - DIZZINESS [None]
  - BLOOD POTASSIUM DECREASED [None]
  - VISION BLURRED [None]
  - HEADACHE [None]
  - HYPERTENSION [None]
  - PROTEIN TOTAL DECREASED [None]
